FAERS Safety Report 21922498 (Version 2)
Quarter: 2023Q1

REPORT INFORMATION
  Report Type: Spontaneous
  Country: BR (occurrence: BR)
  Receive Date: 20230128
  Receipt Date: 20230130
  Transmission Date: 20230418
  Serious: Yes (Other)
  Sender: FDA-Public Use
  Company Number: BR-STERISCIENCE B.V.-2023-ST-000220

PATIENT
  Weight: .88 kg

DRUGS (3)
  1. OXACILLIN [Suspect]
     Active Substance: OXACILLIN SODIUM
     Indication: Product used for unknown indication
     Dosage: UNK
     Route: 064
  2. CEFTAZIDIME [Suspect]
     Active Substance: CEFTAZIDIME
     Indication: Product used for unknown indication
     Dosage: UNK
     Route: 064
  3. METHOTREXATE [Suspect]
     Active Substance: METHOTREXATE
     Indication: Product used for unknown indication
     Dosage: UNK
     Route: 064
     Dates: start: 2017

REACTIONS (3)
  - Premature baby [Unknown]
  - Low birth weight baby [Unknown]
  - Foetal exposure during pregnancy [Unknown]

NARRATIVE: CASE EVENT DATE: 20180101
